FAERS Safety Report 9229497 (Version 5)
Quarter: 2013Q3

REPORT INFORMATION
  Report Type: Report from Study
  Country: US (occurrence: US)
  Receive Date: 20130412
  Receipt Date: 20130726
  Transmission Date: 20140515
  Serious: Yes (Death, Hospitalization)
  Sender: FDA-Public Use
  Company Number: US-ABBOTT-13P-163-1076054-00

PATIENT
  Age: 83 Year
  Sex: Male

DRUGS (2)
  1. HUMIRA [Suspect]
     Indication: PSORIASIS
     Dosage: INITIAL DOSE X 1
     Route: 058
  2. HUMIRA [Suspect]
     Route: 058
     Dates: start: 20120927, end: 20130410

REACTIONS (3)
  - Death [Fatal]
  - Intervertebral disc protrusion [Unknown]
  - Pneumonia [Unknown]
